FAERS Safety Report 15060811 (Version 3)
Quarter: 2020Q4

REPORT INFORMATION
  Report Type: Report from Study
  Country: GB (occurrence: GB)
  Receive Date: 20180625
  Receipt Date: 20201209
  Transmission Date: 20210113
  Serious: Yes (Death, Other)
  Sender: FDA-Public Use
  Company Number: GB-ROCHE-2144107

PATIENT
  Age: 57 Year
  Sex: Male

DRUGS (1)
  1. TENECTEPLASE [Suspect]
     Active Substance: TENECTEPLASE
     Indication: ISCHAEMIC STROKE
     Dosage: DAILY DOSE: NOT REPORTED (ONCE)
     Route: 042
     Dates: start: 20180618

REACTIONS (5)
  - Pneumonia aspiration [Fatal]
  - Type 2 diabetes mellitus [Fatal]
  - Cerebrovascular accident [Fatal]
  - Colon cancer [Fatal]
  - Seizure [Recovering/Resolving]

NARRATIVE: CASE EVENT DATE: 20180618
